FAERS Safety Report 4999450-4 (Version None)
Quarter: 2006Q2

REPORT INFORMATION
  Report Type: 
  Country: None (occurrence: None)
  Receive Date: 20060509
  Receipt Date: 20060509
  Transmission Date: 20061013
  Serious: Yes (Hospitalization)
  Sender: FDA-Public Use
  Company Number: None

PATIENT
  Age: 55 Year
  Sex: Male
  Weight: 100 kg

DRUGS (5)
  1. AZITHROMYCIN [Suspect]
     Indication: INFECTION
     Dosage: 500 MG DAILY FOR 3 DAYS  ORALLY
     Route: 048
     Dates: start: 20050901
  2. LEVOTHYROXINE SODIUM [Concomitant]
  3. IBUPROFEN [Concomitant]
  4. FLUOXETINE [Concomitant]
  5. FAMOTIDINE [Concomitant]

REACTIONS (9)
  - ALANINE AMINOTRANSFERASE INCREASED [None]
  - ASPARTATE AMINOTRANSFERASE INCREASED [None]
  - BILIARY TRACT DISORDER [None]
  - BLOOD BILIRUBIN INCREASED [None]
  - CHOLESTASIS [None]
  - HEPATOTOXICITY [None]
  - INJURY [None]
  - INTERNATIONAL NORMALISED RATIO INCREASED [None]
  - JAUNDICE [None]
